FAERS Safety Report 4401005-7 (Version None)
Quarter: 2004Q3

REPORT INFORMATION
  Report Type: 
  Country: None (occurrence: None)
  Receive Date: 20040907
  Receipt Date: 20030916
  Transmission Date: 20050211
  Serious: No
  Sender: FDA-Public Use
  Company Number: US-BRISTOL-MYERS SQUIBB COMPANY-12383659

PATIENT
  Age: 82 Year
  Sex: Female
  Weight: 83 kg

DRUGS (3)
  1. COUMADIN [Suspect]
     Indication: HEART RATE IRREGULAR
     Dosage: DOSAGE: 5MG DAILY FIVE TIMES WEEKLY AND 2.5MG DAILY TWO TIMES WEEKLY
     Route: 048
  2. LANOXIN [Concomitant]
  3. SYNTHROID [Concomitant]

REACTIONS (1)
  - GASTROINTESTINAL DISORDER [None]
